FAERS Safety Report 5695924-1 (Version None)
Quarter: 2008Q2

REPORT INFORMATION
  Report Type: 
  Country: None (occurrence: None)
  Receive Date: 20080407
  Receipt Date: 20080403
  Transmission Date: 20081010
  Serious: Yes (Other)
  Sender: FDA-Public Use
  Company Number: A0719432A

PATIENT
  Sex: Female

DRUGS (7)
  1. NICODERM [Suspect]
     Indication: DRUG USE FOR UNKNOWN INDICATION
     Dosage: 1PAT PER DAY
     Route: 062
  2. LOSEC I.V. [Concomitant]
     Indication: GASTRIC DISORDER
  3. PREMARIN [Concomitant]
  4. PREGABALIN [Concomitant]
  5. ATIVAN [Concomitant]
  6. FENOFIBRATE [Concomitant]
  7. MIRTAZAPINE [Concomitant]

REACTIONS (2)
  - OVERDOSE [None]
  - PARALYSIS [None]
